FAERS Safety Report 4311900-5 (Version None)
Quarter: 2004Q1

REPORT INFORMATION
  Report Type: 
  Country: None (occurrence: None)
  Receive Date: 20040303
  Receipt Date: 20040220
  Transmission Date: 20041129
  Serious: Yes (Hospitalization)
  Sender: FDA-Public Use
  Company Number: 04P-167-0251245-00

PATIENT
  Age: 63 Year
  Sex: Female
  Weight: 50 kg

DRUGS (5)
  1. HUMIRA [Suspect]
     Indication: RHEUMATOID ARTHRITIS
     Dosage: 40 MG, 1 IN 2 WK, SUBCUTANEOUS
     Route: 058
     Dates: start: 20030701, end: 20040101
  2. PREDNISOLONE [Concomitant]
  3. ALENDRONATE SODIUM [Concomitant]
  4. XXX [Concomitant]
  5. METHYLPRENISOLONE ACETATE [Concomitant]

REACTIONS (1)
  - PSORIASIS [None]
